FAERS Safety Report 5648087-2 (Version None)
Quarter: 2008Q1

REPORT INFORMATION
  Report Type: 
  Country: None (occurrence: None)
  Receive Date: 20080229
  Receipt Date: 20071210
  Transmission Date: 20080703
  Serious: Yes (Hospitalization)
  Sender: FDA-Public Use
  Company Number: 2008BI004623

PATIENT
  Sex: Female

DRUGS (3)
  1. AVONEX [Suspect]
     Indication: RELAPSING-REMITTING MULTIPLE SCLEROSIS
     Dosage: 30 UG QW; TRPL
     Route: 064
     Dates: start: 20040901, end: 20060517
  2. GLUCOPHAGE [Concomitant]
  3. INSULIN [Concomitant]

REACTIONS (18)
  - CAESAREAN SECTION [None]
  - DEHYDRATION [None]
  - DELAYED DELIVERY [None]
  - DRUG EXPOSURE DURING PREGNANCY [None]
  - FOETAL CARDIAC DISORDER [None]
  - FOETAL DISTRESS SYNDROME [None]
  - FOETAL GROWTH RETARDATION [None]
  - INDUCED LABOUR [None]
  - MATERNAL CONDITION AFFECTING FOETUS [None]
  - MECONIUM IN AMNIOTIC FLUID [None]
  - NEONATAL DISORDER [None]
  - NEONATAL INFECTION [None]
  - OLIGOHYDRAMNIOS [None]
  - POLYCYTHAEMIA [None]
  - PREGNANCY [None]
  - PREMATURE BABY [None]
  - RENAL FAILURE NEONATAL [None]
  - THROMBOCYTOPENIA NEONATAL [None]
